FAERS Safety Report 8403190-9 (Version None)
Quarter: 2012Q2

REPORT INFORMATION
  Report Type: 
  Country: None (occurrence: None)
  Receive Date: 20120601
  Receipt Date: 20120530
  Transmission Date: 20120825
  Serious: Yes (Hospitalization)
  Sender: FDA-Public Use
  Company Number: JP-BAYER-200410035BYL

PATIENT
  Age: 66 Year
  Sex: Male
  Weight: 56 kg

DRUGS (1)
  1. GLUCOBAY [Suspect]
     Indication: TYPE 2 DIABETES MELLITUS
     Dosage: 300 MG (DAILY DOSE), , ORAL
     Route: 048
     Dates: end: 20040109

REACTIONS (2)
  - PNEUMATOSIS INTESTINALIS [None]
  - ABDOMINAL DISTENSION [None]
